FAERS Safety Report 17713756 (Version 2)
Quarter: 2020Q2

REPORT INFORMATION
  Report Type: Report from Study
  Country: US (occurrence: US)
  Receive Date: 20200427
  Receipt Date: 20200514
  Transmission Date: 20200714
  Serious: Yes (Hospitalization)
  Sender: FDA-Public Use
  Company Number: US-BAUSCH-BL-2019-058171

PATIENT
  Age: 67 Year
  Sex: Male
  Weight: 79.45 kg

DRUGS (4)
  1. XIFAXAN [Suspect]
     Active Substance: RIFAXIMIN
     Route: 048
     Dates: end: 20200423
  2. XIFAXAN [Suspect]
     Active Substance: RIFAXIMIN
     Indication: HEPATIC CIRRHOSIS
     Route: 048
     Dates: start: 201206, end: 20191012
  3. AMILORIDE [Concomitant]
     Active Substance: AMILORIDE
     Indication: PRODUCT USED FOR UNKNOWN INDICATION
  4. ELIQUIS [Concomitant]
     Active Substance: APIXABAN
     Indication: ANTICOAGULANT THERAPY

REACTIONS (12)
  - Blood pressure abnormal [Unknown]
  - Therapy interrupted [Unknown]
  - Malaise [Not Recovered/Not Resolved]
  - Product supply issue [Unknown]
  - Urinary tract infection [Unknown]
  - Blood glucose increased [Unknown]
  - Ammonia increased [Unknown]
  - Hospitalisation [Recovered/Resolved]
  - Weight decreased [Unknown]
  - Cough [Not Recovered/Not Resolved]
  - Decreased appetite [Unknown]
  - Platelet disorder [Unknown]

NARRATIVE: CASE EVENT DATE: 201910
